FAERS Safety Report 5609627-2 (Version None)
Quarter: 2008Q1

REPORT INFORMATION
  Report Type: 
  Country: None (occurrence: None)
  Receive Date: 20080131
  Receipt Date: 20080123
  Transmission Date: 20080703
  Serious: Yes (Death)
  Sender: FDA-Public Use
  Company Number: A0706143A

PATIENT
  Sex: Female
  Weight: 2.5 kg

DRUGS (1)
  1. TRIZIVIR [Suspect]
     Indication: HIV INFECTION
     Dosage: 2TAB PER DAY
     Dates: start: 20071005, end: 20071203

REACTIONS (7)
  - CARDIOMEGALY [None]
  - CONGENITAL CARDIOVASCULAR ANOMALY [None]
  - CONGENITAL PULMONARY HYPERTENSION [None]
  - CONGENITAL PULMONARY VALVE ATRESIA [None]
  - DRUG EXPOSURE DURING PREGNANCY [None]
  - EBSTEIN'S ANOMALY [None]
  - NEONATAL DISORDER [None]
